FAERS Safety Report 5811420-2 (Version None)
Quarter: 2008Q3

REPORT INFORMATION
  Report Type: 
  Country: None (occurrence: None)
  Receive Date: 20080716
  Receipt Date: 20080710
  Transmission Date: 20090109
  Serious: Yes (Hospitalization)
  Sender: FDA-Public Use
  Company Number: FR-JNJFOC-20080702186

PATIENT
  Age: 60 Year
  Sex: Male

DRUGS (5)
  1. OFLOCET [Suspect]
     Indication: ARTERIAL INJURY
     Dosage: THERAPY DURATION 6 WEEKS 1 DAY
     Route: 048
     Dates: start: 20080414, end: 20080526
  2. RIFATER [Suspect]
     Indication: ARTERIAL INJURY
     Dosage: 6 TABLETS DAILY UNITS NOT REPORTED
     Route: 048
     Dates: start: 20080414, end: 20080525
  3. ASPEGIC 325 [Suspect]
     Indication: STENT PLACEMENT
     Route: 048
     Dates: start: 20080414, end: 20080528
  4. VITAMIN B1 TAB [Concomitant]
     Route: 065
     Dates: start: 20080423
  5. VITAMIN B6 [Concomitant]
     Route: 065
     Dates: start: 20080423

REACTIONS (5)
  - HAEMATOMA [None]
  - HYPERURICAEMIA [None]
  - PETECHIAE [None]
  - THROMBOCYTOPENIA [None]
  - TONGUE HAEMORRHAGE [None]
